FAERS Safety Report 7749479-8 (Version None)
Quarter: 2011Q3

REPORT INFORMATION
  Report Type: 
  Country: None (occurrence: None)
  Receive Date: 20110914
  Receipt Date: 20110907
  Transmission Date: 20111222
  Serious: No
  Sender: FDA-Public Use
  Company Number: PHHY2011RO59418

PATIENT
  Age: 24 Year
  Sex: Female

DRUGS (4)
  1. VALPROIC ACID [Suspect]
     Indication: CONVULSION
     Dosage: UNK UKN, UNK
  2. TOPIRAMATE [Suspect]
     Indication: CONVULSION
     Dosage: 400 MG, DAILY IN TWO DIVIDED DOSES
  3. CARBAMAZEPINE [Suspect]
     Indication: CONVULSION
     Dosage: UNK UKN, UNK
  4. PHENYTOIN [Suspect]
     Indication: CONVULSION
     Dosage: UNK UKN, UNK

REACTIONS (1)
  - DRUG INEFFECTIVE [None]
